FAERS Safety Report 8943707 (Version 1)
Quarter: 2012Q4

REPORT INFORMATION
  Report Type: 
  Country: US (occurrence: US)
  Receive Date: 20121203
  Receipt Date: 20121203
  Transmission Date: 20130627
  Serious: Yes (Death)
  Sender: FDA-Public Use
  Company Number: US-GLAXOSMITHKLINE-A0684176A

PATIENT
  Age: 58 Year
  Sex: Male
  Weight: 81.8 kg

DRUGS (10)
  1. AVANDIA [Suspect]
     Indication: TYPE 2 DIABETES MELLITUS
     Dosage: 8MG Per day
     Dates: start: 20010731, end: 20060215
  2. GLUCOPHAGE [Concomitant]
     Dates: start: 20010731, end: 20060215
  3. METFORMIN [Concomitant]
     Dates: start: 2005, end: 2006
  4. DIABETA [Concomitant]
  5. GLUCOTROL [Concomitant]
     Dates: start: 1997, end: 2001
  6. GLUCOVANCE [Concomitant]
     Dosage: 2TAB Twice per day
     Route: 048
  7. ALTACE [Concomitant]
     Dosage: 10MG Per day
  8. LIPITOR [Concomitant]
     Dosage: 20MG At night
  9. VIAGRA [Concomitant]
     Dosage: 50MG As required
  10. TYLENOL PM [Concomitant]
     Indication: INSOMNIA

REACTIONS (8)
  - Myocardial infarction [Fatal]
  - Pain [Unknown]
  - Anxiety [Unknown]
  - Injury [Unknown]
  - Heart injury [Unknown]
  - Joint swelling [Unknown]
  - Retinal haemorrhage [Unknown]
  - Chest pain [Unknown]
